FAERS Safety Report 6905209-0 (Version None)
Quarter: 2010Q3

REPORT INFORMATION
  Report Type: 
  Country: None (occurrence: None)
  Receive Date: 20100708
  Receipt Date: 20100302
  Transmission Date: 20110219
  Serious: Yes (Other)
  Sender: FDA-Public Use
  Company Number: 2007069387

PATIENT
  Age: 73 Year
  Sex: Female

DRUGS (3)
  1. CHANTIX [Suspect]
     Dates: start: 20070801
  2. FOSAMAX [Concomitant]
  3. LISINOPRIL [Concomitant]

REACTIONS (6)
  - ABDOMINAL DISCOMFORT [None]
  - FEELING ABNORMAL [None]
  - MOVEMENT DISORDER [None]
  - PAIN [None]
  - STRESS [None]
  - WRONG TECHNIQUE IN DRUG USAGE PROCESS [None]
